FAERS Safety Report 9271797 (Version 2)
Quarter: 2013Q2

REPORT INFORMATION
  Report Type: Spontaneous
  Country: CN (occurrence: CN)
  Receive Date: 20130506
  Receipt Date: 20130509
  Transmission Date: 20140414
  Serious: Yes (Death)
  Sender: FDA-Public Use
  Company Number: CN-BAYER-2013-054918

PATIENT
  Sex: 0

DRUGS (1)
  1. ULTRAVIST 370 [Suspect]
     Indication: PULMONARY EMBOLISM
     Dosage: UNK
     Dates: start: 20130428, end: 20130428

REACTIONS (1)
  - Pulmonary embolism [Fatal]
